FAERS Safety Report 11216272 (Version 2)
Quarter: 2017Q1

REPORT INFORMATION
  Report Type: Spontaneous
  Country: US (occurrence: US)
  Receive Date: 20150624
  Receipt Date: 20170328
  Transmission Date: 20170428
  Serious: Yes (Other)
  Sender: FDA-Public Use
  Company Number: US-ELI_LILLY_AND_COMPANY-US201506006865

PATIENT
  Sex: Male

DRUGS (2)
  1. CYMBALTA [Suspect]
     Active Substance: DULOXETINE HYDROCHLORIDE
     Dosage: 30 MG, QD
     Route: 048
  2. CYMBALTA [Suspect]
     Active Substance: DULOXETINE HYDROCHLORIDE
     Indication: NEUROPATHY PERIPHERAL
     Dosage: 30 MG, EVERY 8 HRS
     Route: 048
     Dates: start: 201301

REACTIONS (18)
  - Rash [Unknown]
  - Drug withdrawal syndrome [Unknown]
  - Balance disorder [Unknown]
  - Vomiting [Unknown]
  - Anxiety [Unknown]
  - Hyperhidrosis [Unknown]
  - Skin irritation [Unknown]
  - Nausea [Unknown]
  - Headache [Unknown]
  - Dizziness [Unknown]
  - Dysphoria [Unknown]
  - Fatigue [Unknown]
  - Insomnia [Unknown]
  - Pyrexia [Unknown]
  - Off label use [Recovered/Resolved]
  - Confusional state [Unknown]
  - Vertigo [Unknown]
  - Lethargy [Unknown]
